FAERS Safety Report 7130339-0 (Version None)
Quarter: 2010Q4

REPORT INFORMATION
  Report Type: 
  Country: None (occurrence: None)
  Receive Date: 20101101
  Receipt Date: 20100910
  Transmission Date: 20110411
  Serious: Yes (Hospitalization)
  Sender: FDA-Public Use
  Company Number: AMAG201000348

PATIENT
  Age: 66 Year
  Sex: Female
  Weight: 102 kg

DRUGS (2)
  1. FERAHEME [Suspect]
     Indication: IRON DEFICIENCY ANAEMIA
     Dosage: 510 MG, SINGLE, INTRAVENOUS
     Route: 042
     Dates: start: 20100909, end: 20100909
  2. VANCOMYCIN [Concomitant]

REACTIONS (6)
  - CHILLS [None]
  - DIZZINESS [None]
  - HYPERTENSION [None]
  - PARAESTHESIA [None]
  - PYREXIA [None]
  - VOMITING [None]
